FAERS Safety Report 13566667 (Version 1)
Quarter: 2017Q2

REPORT INFORMATION
  Report Type: Spontaneous
  Country: US (occurrence: US)
  Receive Date: 20170522
  Receipt Date: 20170522
  Transmission Date: 20170830
  Serious: No
  Sender: FDA-Public Use
  Company Number: US-ASTRAZENECA-2017SE52877

PATIENT
  Sex: Female
  Weight: 79.4 kg

DRUGS (3)
  1. SYMBICORT [Suspect]
     Active Substance: BUDESONIDE\FORMOTEROL FUMARATE DIHYDRATE
     Indication: ASTHMA
     Dosage: SYMBICORT 160/4.5 MCG 120 INHALATIONS, 160 UG DAILY.
     Route: 055
     Dates: start: 20170425
  2. SYMBICORT [Suspect]
     Active Substance: BUDESONIDE\FORMOTEROL FUMARATE DIHYDRATE
     Indication: ASTHMA
     Dosage: SYMBICORT 160/4.5 MCG 120 INHALATIONS, 160 UG BID.
     Route: 055
  3. PROAIR HFA [Concomitant]
     Active Substance: ALBUTEROL SULFATE
     Indication: INHALATION THERAPY
     Dosage: AS REQUIRED

REACTIONS (5)
  - Intentional product misuse [Unknown]
  - Bronchitis [Unknown]
  - Product quality issue [Unknown]
  - Malaise [Unknown]
  - Gastrooesophageal reflux disease [Unknown]
